FAERS Safety Report 8221196-X (Version None)
Quarter: 2012Q1

REPORT INFORMATION
  Report Type: 
  Country: None (occurrence: None)
  Receive Date: 20120320
  Receipt Date: 20120306
  Transmission Date: 20120608
  Serious: Yes (Other)
  Sender: FDA-Public Use
  Company Number: PHHY2012NL019262

PATIENT
  Sex: Male

DRUGS (3)
  1. ZOMETA [Suspect]
     Indication: PROSTATE CANCER METASTATIC
     Dosage: 4 MG/100ML (INFUSION OVER 20MIN) ONCE PER 28 DAYS
     Dates: start: 20110908
  2. ZOMETA [Suspect]
     Dosage: 4 MG/100ML (INFUSION OVER 20MIN) ONCE PER 28 DAYS
     Dates: start: 20120206
  3. ZOMETA [Suspect]
     Dosage: 4 MG/100ML (INFUSION OVER 20MIN) ONCE PER 28 DAYS
     Dates: start: 20120306

REACTIONS (2)
  - THROMBOSIS [None]
  - PAIN [None]
